FAERS Safety Report 16687322 (Version 1)
Quarter: 2019Q4

REPORT INFORMATION
  Report Type: Spontaneous
  Country: US (occurrence: US)
  Receive Date: 20190808
  Receipt Date: 20190808
  Transmission Date: 20200122
  Serious: Yes (Other)
  Sender: FDA-Public Use
  Company Number: None

PATIENT
  Age: 29 Year
  Sex: Male
  Weight: 94.5 kg

DRUGS (9)
  1. TESTOSTERONE. [Suspect]
     Active Substance: TESTOSTERONE
     Indication: ADRENAL INSUFFICIENCY
     Dosage: ?          QUANTITY:15 TABLET(S);?
     Route: 048
     Dates: start: 20170601, end: 20190808
  2. METHYLPREDNISOLONE. [Suspect]
     Active Substance: METHYLPREDNISOLONE
  3. DEXAMETHASONE. [Suspect]
     Active Substance: DEXAMETHASONE
  4. HYDROCORTISONE. [Suspect]
     Active Substance: HYDROCORTISONE
  5. PREDNISONE. [Suspect]
     Active Substance: PREDNISONE
  6. TESTOSTERONE. [Suspect]
     Active Substance: TESTOSTERONE
     Indication: HYPOPITUITARISM
     Dosage: ?          QUANTITY:15 TABLET(S);?
     Route: 048
     Dates: start: 20170601, end: 20190808
  7. TESTOSTERONE CYPIONATE. [Concomitant]
     Active Substance: TESTOSTERONE CYPIONATE
  8. RAYOS/PREDNISONE [Concomitant]
  9. FLUDROCORTISONE [Concomitant]
     Active Substance: FLUDROCORTISONE

REACTIONS (4)
  - Drug ineffective [None]
  - Manufacturing materials issue [None]
  - Product counterfeit [None]
  - Adrenocortical insufficiency acute [None]

NARRATIVE: CASE EVENT DATE: 20190807
